FAERS Safety Report 23135613 (Version 2)
Quarter: 2023Q4

REPORT INFORMATION
  Report Type: Spontaneous
  Country: US (occurrence: US)
  Receive Date: 20231101
  Receipt Date: 20231227
  Transmission Date: 20240109
  Serious: No
  Sender: FDA-Public Use
  Company Number: US-INCYTE CORPORATION-2023IN011136

PATIENT

DRUGS (8)
  1. JAKAFI [Suspect]
     Active Substance: RUXOLITINIB
     Indication: Acute lymphocytic leukaemia
     Dosage: 50 MILLIGRAM, BID
     Route: 048
     Dates: start: 20231008, end: 20231112
  2. MERCAPTOPURINE [Concomitant]
     Active Substance: MERCAPTOPURINE
     Indication: Product used for unknown indication
     Dosage: 96 MILLIGRAM, QD
     Route: 065
     Dates: start: 20231006, end: 20231017
  3. VINCRISTINE [Concomitant]
     Active Substance: VINCRISTINE
     Indication: Product used for unknown indication
     Dosage: UNK
     Route: 065
     Dates: start: 20231012
  4. VINCRISTINE [Concomitant]
     Active Substance: VINCRISTINE
     Dosage: UNK
     Route: 065
     Dates: start: 20231018
  5. VINCRISTINE [Concomitant]
     Active Substance: VINCRISTINE
     Dosage: UNK
     Route: 065
     Dates: start: 20231025, end: 20231108
  6. METHOTREXATE [Concomitant]
     Active Substance: METHOTREXATE
     Indication: Product used for unknown indication
     Dosage: UNK
     Route: 037
     Dates: start: 20231102, end: 20231108
  7. CYTARABINE [Concomitant]
     Active Substance: CYTARABINE
     Indication: Product used for unknown indication
     Dosage: UNK
     Route: 037
     Dates: start: 20231102, end: 20231108
  8. HYDROCORTISONE [Concomitant]
     Active Substance: HYDROCORTISONE
     Indication: Product used for unknown indication
     Dosage: UNK
     Route: 037
     Dates: start: 20231102, end: 20231108

REACTIONS (2)
  - Off label use [Unknown]
  - Prescribed overdose [Unknown]

NARRATIVE: CASE EVENT DATE: 20231008
